FAERS Safety Report 7522098-4 (Version None)
Quarter: 2011Q2

REPORT INFORMATION
  Report Type: 
  Country: None (occurrence: None)
  Receive Date: 20110603
  Receipt Date: 20110602
  Transmission Date: 20111010
  Serious: Yes (Other)
  Sender: FDA-Public Use
  Company Number: US-PFIZER INC-2011120086

PATIENT
  Sex: Female
  Weight: 72.562 kg

DRUGS (1)
  1. CHANTIX [Suspect]
     Indication: SMOKING CESSATION THERAPY
     Dosage: 1 MG, 2X/DAY
     Route: 048
     Dates: start: 20110501, end: 20110530

REACTIONS (3)
  - BLISTER [None]
  - RASH GENERALISED [None]
  - OEDEMA PERIPHERAL [None]
